FAERS Safety Report 4779740-0 (Version None)
Quarter: 2005Q3

REPORT INFORMATION
  Report Type: 
  Country: None (occurrence: None)
  Receive Date: 20050914
  Receipt Date: 20050514
  Transmission Date: 20060218
  Serious: Yes (Hospitalization)
  Sender: FDA-Public Use
  Company Number: 163-20785-05050252

PATIENT
  Age: 77 Year
  Sex: Female
  Weight: 45.9 kg

DRUGS (5)
  1. THALOMID [Suspect]
     Indication: NON-SMALL CELL LUNG CANCER
     Dosage: SEE IMAGE
     Route: 048
     Dates: end: 20050419
  2. THALOMID [Suspect]
     Indication: NON-SMALL CELL LUNG CANCER
     Dosage: SEE IMAGE
     Route: 048
     Dates: start: 20040414
  3. PACLITAXEL [Suspect]
     Indication: NON-SMALL CELL LUNG CANCER
     Dosage: 225MG/M2 IV OVER 3 HOURS ON DAY 1 EVERY 21 DAYS X 2
     Route: 042
     Dates: start: 20040414
  4. CARBOPLATIN [Suspect]
     Indication: NON-SMALL CELL LUNG CANCER
     Dosage: 6 IV OVER 15-30 MIN ON DAY 1 EVERY 21 DAYS X 2
     Route: 042
     Dates: start: 20040414
  5. RADIATION THERAPY [Suspect]
     Indication: NON-SMALL CELL LUNG CANCER
     Dosage: 60GY OVER 6 WKS BETWEEN DAYS 43-50

REACTIONS (1)
  - PLEURAL EFFUSION [None]
